FAERS Safety Report 7914756-4 (Version None)
Quarter: 2011Q4

REPORT INFORMATION
  Report Type: 
  Country: None (occurrence: None)
  Receive Date: 20111115
  Receipt Date: 20111110
  Transmission Date: 20120403
  Serious: Yes (Other)
  Sender: FDA-Public Use
  Company Number: PHHY2011DE88030

PATIENT
  Sex: Female
  Weight: 66.7 kg

DRUGS (6)
  1. NON STEROIDAL ANTI RHEUMATIC DRUG [Concomitant]
     Indication: PROPHYLAXIS
     Dosage: 800 MG, UNK
     Dates: start: 20090918, end: 20090920
  2. ZOLEDRONOC ACID [Suspect]
     Dosage: 5 MG, ONCE YEARLY
     Route: 042
     Dates: start: 20090917
  3. VITAMIN D [Concomitant]
     Indication: OSTEOPOROSIS
     Dosage: 880 IU, UNK
  4. CALCIUM [Concomitant]
     Indication: OSTEOPOROSIS
     Dosage: 1000 MG, UNK
  5. ZOLEDRONOC ACID [Suspect]
     Indication: OSTEOPOROSIS
     Dosage: UNK UKN, UNK
     Route: 042
  6. PROTELOS [Concomitant]
     Dosage: UNK UKN, UNK

REACTIONS (1)
  - OSTEONECROSIS OF JAW [None]
